FAERS Safety Report 6674486-6 (Version None)
Quarter: 2010Q2

REPORT INFORMATION
  Report Type: 
  Country: None (occurrence: None)
  Receive Date: 20100409
  Receipt Date: 20100330
  Transmission Date: 20101027
  Serious: Yes (Disabling)
  Sender: FDA-Public Use
  Company Number: GB-JNJFOC-20100401703

PATIENT
  Age: 47 Year
  Sex: Female
  Weight: 60.33 kg

DRUGS (1)
  1. TRAMADOL HYDROCHLORIDE [Suspect]
     Indication: PROCEDURAL PAIN
     Dosage: AS NEEDED
     Route: 048

REACTIONS (4)
  - DEHYDRATION [None]
  - NAUSEA [None]
  - RETCHING [None]
  - VOMITING [None]
